FAERS Safety Report 7373028-X (Version None)
Quarter: 2011Q1

REPORT INFORMATION
  Report Type: 
  Country: None (occurrence: None)
  Receive Date: 20110324
  Receipt Date: 20110321
  Transmission Date: 20110831
  Serious: Yes (Other)
  Sender: FDA-Public Use
  Company Number: US-GENZYME-THYM-1002365

PATIENT
  Age: 22 Year
  Sex: Male

DRUGS (3)
  1. DACLIXIMAB [Concomitant]
     Indication: ACUTE GRAFT VERSUS HOST DISEASE
     Dosage: 5 MG/KG, 1X/W
  2. METHOTREXATE [Concomitant]
     Indication: ACUTE GRAFT VERSUS HOST DISEASE
     Dosage: 10 MG, 1X/W
  3. THYMOGLOBULIN [Suspect]
     Indication: ACUTE GRAFT VERSUS HOST DISEASE
     Dosage: 3 MG/KG, 1X/W
     Route: 042

REACTIONS (6)
  - BRONCHOPULMONARY ASPERGILLOSIS [None]
  - THERAPEUTIC RESPONSE DECREASED [None]
  - ILEUS [None]
  - CYTOMEGALOVIRUS INFECTION [None]
  - DRUG DEPENDENCE [None]
  - EPSTEIN-BARR VIRUS INFECTION [None]
